FAERS Safety Report 13180575 (Version 5)
Quarter: 2017Q1

REPORT INFORMATION
  Report Type: Report from Study
  Country: US (occurrence: US)
  Receive Date: 20170202
  Receipt Date: 20170316
  Transmission Date: 20170428
  Serious: Yes (Hospitalization)
  Sender: FDA-Public Use
  Company Number: US-BIOGEN-2017BI00351546

PATIENT
  Age: 71 Year
  Sex: Male

DRUGS (1)
  1. TYSABRI [Suspect]
     Active Substance: NATALIZUMAB
     Indication: MULTIPLE SCLEROSIS
     Route: 065
     Dates: start: 20090414

REACTIONS (4)
  - Ill-defined disorder [Unknown]
  - Vomiting [Recovered/Resolved]
  - Atrial fibrillation [Not Recovered/Not Resolved]
  - Volvulus [Unknown]

NARRATIVE: CASE EVENT DATE: 201701
